FAERS Safety Report 9860839 (Version 1)
Quarter: 2014Q1

REPORT INFORMATION
  Report Type: Spontaneous
  Country: FR (occurrence: FR)
  Receive Date: 20140202
  Receipt Date: 20140202
  Transmission Date: 20141002
  Serious: No
  Sender: FDA-Public Use
  Company Number: FR-ALLERGAN-1301903US

PATIENT
  Sex: Female

DRUGS (1)
  1. VISTABEL [Suspect]
     Indication: SKIN WRINKLING
     Dosage: 50 UNITS, SINGLE
     Route: 030
     Dates: start: 20121019, end: 20121019

REACTIONS (2)
  - Product reconstitution issue [Unknown]
  - Drug ineffective [Unknown]
